FAERS Safety Report 4287049-7 (Version None)
Quarter: 2004Q1

REPORT INFORMATION
  Report Type: 
  Country: None (occurrence: None)
  Receive Date: 20040121
  Receipt Date: 20030624
  Transmission Date: 20041129
  Serious: Yes (Disabling)
  Sender: FDA-Public Use
  Company Number: A03200301416

PATIENT
  Age: 78 Year
  Sex: Female
  Weight: 53.5244 kg

DRUGS (13)
  1. PLAVIX [Suspect]
     Indication: PROPHYLAXIS
     Dosage: 75 MG QD  - ORAL
     Route: 048
     Dates: start: 20000101, end: 20030901
  2. MULTI-VITAMINS [Concomitant]
  3. AMLODIPINE AND BENAZEPRIL HYDROCHLORIDE [Concomitant]
  4. POTASSIUM [Concomitant]
  5. CELANDINE EXTRACT [Concomitant]
  6. WATER [Concomitant]
  7. METOPROLOL TARTRATE [Concomitant]
  8. ACETIC ACID WITH HYDROCORTISONE [Concomitant]
  9. ATENOLOL [Concomitant]
  10. ACETYLSALICYLIC ACID SRT [Concomitant]
  11. MULTIVITAMIN AND MULTIMINERAL WITH LUETIN AND ZEAXANTHIN [Concomitant]
  12. MECLIZINE [Concomitant]
  13. CALCIUM [Concomitant]

REACTIONS (4)
  - ASTHENIA [None]
  - DIZZINESS [None]
  - FALL [None]
  - INCREASED TENDENCY TO BRUISE [None]
